FAERS Safety Report 12244964 (Version 1)
Quarter: 2016Q2

REPORT INFORMATION
  Report Type: Spontaneous
  Country: US (occurrence: None)
  Receive Date: 20160406
  Receipt Date: 20160406
  Transmission Date: 20160815
  Serious: Yes (Disabling)
  Sender: FDA-Public Use
  Company Number: None

PATIENT
  Age: 73 Year
  Sex: Female
  Weight: 53.52 kg

DRUGS (11)
  1. OMEPRAZOLE. [Concomitant]
     Active Substance: OMEPRAZOLE
  2. FIORICET [Concomitant]
     Active Substance: ACETAMINOPHEN\BUTALBITAL\CAFFEINE
  3. ESTRACE [Concomitant]
     Active Substance: ESTRADIOL
  4. MULTI-VITAMIN [Concomitant]
     Active Substance: .ALPHA.-TOCOPHEROL ACETATE, DL-\ASCORBIC ACID\CYANOCOBALAMIN\FLUORIDE ION\FOLIC ACID\NIACIN\PYRIDOXINE\RIBOFLAVIN\THIAMINE\VITAMIN A\VITAMIN D
  5. FISH OIL [Concomitant]
     Active Substance: FISH OIL
  6. BETAMETHASONE VALERATE. [Concomitant]
     Active Substance: BETAMETHASONE VALERATE
  7. VITAMIN D3 [Concomitant]
     Active Substance: CHOLECALCIFEROL
  8. VAGIFEM [Concomitant]
     Active Substance: ESTRADIOL
  9. CIPROFLOXACIN. [Suspect]
     Active Substance: CIPROFLOXACIN
     Indication: URINARY TRACT INFECTION
     Dosage: 14 TABLET (S) TWICE A DAY TAKEN BY MOUTH
     Route: 048
     Dates: start: 20150716, end: 20150722
  10. LOW-DOSE ASPIRIN [Concomitant]
     Active Substance: ASPIRIN
  11. CALCIUM [Concomitant]
     Active Substance: CALCIUM

REACTIONS (3)
  - Pain in extremity [None]
  - Tendonitis [None]
  - Tendon rupture [None]

NARRATIVE: CASE EVENT DATE: 20150727
